FAERS Safety Report 21040671 (Version 9)
Quarter: 2024Q3

REPORT INFORMATION
  Report Type: Spontaneous
  Country: JP (occurrence: JP)
  Receive Date: 20220704
  Receipt Date: 20240726
  Transmission Date: 20241017
  Serious: Yes (Life-Threatening, Hospitalization, Other)
  Sender: MERCK
  Company Number: JP-MSD-M2022-23800

PATIENT
  Age: 51 Year
  Sex: Female
  Weight: 60 kg

DRUGS (3)
  1. KEYTRUDA [Suspect]
     Active Substance: PEMBROLIZUMAB
     Indication: Endometrial cancer stage IV
     Dosage: 200 MILLIGRAM, Q3W
     Route: 041
     Dates: start: 20220607, end: 20220607
  2. LENVATINIB MESYLATE [Suspect]
     Active Substance: LENVATINIB MESYLATE
     Indication: Endometrial cancer stage IV
     Dosage: 20 MILLIGRAM, QD
     Route: 048
     Dates: start: 20220607, end: 20220615
  3. LENVATINIB MESYLATE [Suspect]
     Active Substance: LENVATINIB MESYLATE
     Dosage: 20 MILLIGRAM, QD
     Route: 048
     Dates: start: 20220621, end: 20220621

REACTIONS (9)
  - Disseminated intravascular coagulation [Recovered/Resolved]
  - Immune-mediated myocarditis [Recovered/Resolved]
  - Pulmonary oedema [Recovering/Resolving]
  - Shock [Recovered/Resolved]
  - Immune-mediated hyperthyroidism [Recovering/Resolving]
  - Haemophagocytic lymphohistiocytosis [Recovered/Resolved]
  - Hypertension [Recovering/Resolving]
  - Chills [Unknown]
  - Chills [Unknown]

NARRATIVE: CASE EVENT DATE: 20220608
